FAERS Safety Report 7837688 (Version 2)
Quarter: 2012Q4

REPORT INFORMATION
  Report Type: 
  Country: US (occurrence: US)
  Receive Date: 20110302
  Receipt Date: 20121211
  Transmission Date: 20130627
  Serious: Yes (Hospitalization, Other)
  Sender: FDA-Public Use
  Company Number: US-PFIZER INC-2009314344

PATIENT
  Age: 42 Year
  Sex: Female

DRUGS (1)
  1. DILANTIN-125 [Suspect]
     Indication: SEIZURE
     Dosage: 100mg at morning and 400mg at bed time daily
     Route: 048
     Dates: start: 20070319, end: 200704

REACTIONS (1)
  - Stevens-Johnson syndrome [Unknown]
